FAERS Safety Report 4418218-0 (Version None)
Quarter: 2004Q3

REPORT INFORMATION
  Report Type: 
  Country: None (occurrence: None)
  Receive Date: 20040809
  Receipt Date: 20040107
  Transmission Date: 20050211
  Serious: No
  Sender: FDA-Public Use
  Company Number: US-GLAXOSMITHKLINE-A0491934A

PATIENT
  Age: 69 Year
  Sex: Male

DRUGS (3)
  1. PAXIL [Suspect]
     Indication: DEPRESSION
     Dosage: 12.5MG PER DAY
     Route: 048
  2. XANAX [Concomitant]
  3. DEPAKOTE [Concomitant]

REACTIONS (2)
  - DYSURIA [None]
  - PROSTATIC DISORDER [None]
